FAERS Safety Report 23595122 (Version 1)
Quarter: 2024Q1

REPORT INFORMATION
  Report Type: Spontaneous
  Country: GB (occurrence: GB)
  Receive Date: 20240305
  Receipt Date: 20240305
  Transmission Date: 20240410
  Serious: Yes (Hospitalization, Other)
  Sender: FDA-Public Use
  Company Number: GB-GILEAD-2024-0663063

PATIENT
  Age: 53 Year
  Sex: Female

DRUGS (3)
  1. TRODELVY [Suspect]
     Active Substance: SACITUZUMAB GOVITECAN-HZIY
     Indication: Breast cancer
     Dosage: 10 MG/KG DAY 1 AND DAY 8
     Route: 065
     Dates: start: 202305
  2. TRODELVY [Suspect]
     Active Substance: SACITUZUMAB GOVITECAN-HZIY
     Dosage: DOSE REDUCTION
     Route: 065
     Dates: start: 202305
  3. TRODELVY [Suspect]
     Active Substance: SACITUZUMAB GOVITECAN-HZIY
     Dosage: 5 MG/KG
     Route: 065
     Dates: start: 202305

REACTIONS (7)
  - Neutropenic sepsis [Unknown]
  - Human rhinovirus test positive [Unknown]
  - Malaise [Unknown]
  - Neutropenia [Recovered/Resolved]
  - Diarrhoea [Unknown]
  - Colitis [Unknown]
  - Fatigue [Unknown]
